FAERS Safety Report 19612845 (Version 2)
Quarter: 2021Q3

REPORT INFORMATION
  Report Type: Spontaneous
  Country: US (occurrence: US)
  Receive Date: 20210727
  Receipt Date: 20210802
  Transmission Date: 20211014
  Serious: No
  Sender: FDA-Public Use
  Company Number: US-UNITED THERAPEUTICS-UNT-2021-011336

PATIENT
  Age: 54 Year
  Sex: Male
  Weight: 113.38 kg

DRUGS (7)
  1. TYVASO [Suspect]
     Active Substance: TREPROSTINIL
     Dosage: UNK
     Dates: start: 2021
  2. ELIQUIS [Suspect]
     Active Substance: APIXABAN
     Indication: PRODUCT USED FOR UNKNOWN INDICATION
     Dosage: UNK
     Route: 065
  3. TYVASO [Suspect]
     Active Substance: TREPROSTINIL
     Dosage: 18?54 ?G, QID
     Dates: start: 2021
  4. SILDENAFIL CITRATE. [Concomitant]
     Active Substance: SILDENAFIL CITRATE
     Indication: PRODUCT USED FOR UNKNOWN INDICATION
     Dosage: UNK
     Route: 065
  5. UPTRAVI [Concomitant]
     Active Substance: SELEXIPAG
     Indication: PRODUCT USED FOR UNKNOWN INDICATION
     Dosage: UNK
     Route: 065
  6. TYVASO [Suspect]
     Active Substance: TREPROSTINIL
     Indication: PULMONARY ARTERIAL HYPERTENSION
     Dosage: UNK
     Dates: start: 20210604
  7. TYVASO [Suspect]
     Active Substance: TREPROSTINIL
     Dosage: 60?120 ?G, QID
     Dates: start: 2021

REACTIONS (9)
  - Epistaxis [Unknown]
  - Diarrhoea [Unknown]
  - Off label use [Unknown]
  - Vomiting [Unknown]
  - Abdominal pain upper [Unknown]
  - Fatigue [Unknown]
  - Abdominal discomfort [Unknown]
  - Influenza like illness [Recovering/Resolving]
  - Dyspepsia [Unknown]

NARRATIVE: CASE EVENT DATE: 2021
